FAERS Safety Report 7583715-6 (Version None)
Quarter: 2011Q2

REPORT INFORMATION
  Report Type: 
  Country: None (occurrence: None)
  Receive Date: 20110630
  Receipt Date: 20110623
  Transmission Date: 20111010
  Serious: Yes (Death, Hospitalization)
  Sender: FDA-Public Use
  Company Number: B0728958A

PATIENT
  Age: 61 Year
  Sex: Male
  Weight: 170 kg

DRUGS (3)
  1. ARIXTRA [Suspect]
     Indication: THROMBOSIS PROPHYLAXIS
     Dosage: 7.5MG PER DAY
     Route: 058
     Dates: start: 20110617, end: 20110622
  2. LOVENOX [Concomitant]
     Indication: THROMBOSIS PROPHYLAXIS
     Dosage: .6ML SINGLE DOSE
     Route: 065
     Dates: start: 20110612, end: 20110612
  3. HEPARIN SODIUM [Concomitant]
     Indication: THROMBOSIS PROPHYLAXIS
     Dates: start: 20110613, end: 20110616

REACTIONS (4)
  - MULTI-ORGAN FAILURE [None]
  - SHOCK HAEMORRHAGIC [None]
  - PERITONEAL HAEMORRHAGE [None]
  - OVERDOSE [None]
